FAERS Safety Report 7598114-0 (Version None)
Quarter: 2011Q3

REPORT INFORMATION
  Report Type: 
  Country: None (occurrence: None)
  Receive Date: 20110708
  Receipt Date: 20110627
  Transmission Date: 20111222
  Serious: Yes (Life-Threatening)
  Sender: FDA-Public Use
  Company Number: TR-US-EMD SERONO, INC.-7061824

PATIENT
  Sex: Female
  Weight: 91 kg

DRUGS (2)
  1. REBIF [Suspect]
     Indication: RELAPSING-REMITTING MULTIPLE SCLEROSIS
     Route: 058
     Dates: start: 20051001, end: 20110523
  2. CORTISONE ACETATE [Suspect]
     Indication: MULTIPLE SCLEROSIS RELAPSE
     Dates: start: 20110401

REACTIONS (6)
  - MULTIPLE SCLEROSIS RELAPSE [None]
  - HEPATITIS [None]
  - NAUSEA [None]
  - THYROID DISORDER [None]
  - OSTEOPOROSIS [None]
  - ASTHENIA [None]
